FAERS Safety Report 11191911 (Version 1)
Quarter: 2015Q2

REPORT INFORMATION
  Report Type: Spontaneous
  Country: FR (occurrence: None)
  Receive Date: 20150612
  Receipt Date: 20150612
  Transmission Date: 20150821
  Serious: Yes (Hospitalization)
  Sender: FDA-Public Use
  Company Number: 8029019

PATIENT
  Age: 65 Year
  Sex: Male

DRUGS (1)
  1. LEVOTHYROX [Suspect]
     Active Substance: LEVOTHYROXINE
     Indication: THYROIDITIS
     Dates: start: 20141209, end: 20150521

REACTIONS (3)
  - Head discomfort [None]
  - Malaise [None]
  - Epilepsy [None]

NARRATIVE: CASE EVENT DATE: 201505
